FAERS Safety Report 18089152 (Version 3)
Quarter: 2021Q1

REPORT INFORMATION
  Report Type: Report from Study
  Country: None (occurrence: DE)
  Receive Date: 20200730
  Receipt Date: 20210209
  Transmission Date: 20210419
  Serious: Yes (Hospitalization)
  Sender: FDA-Public Use
  Company Number: DE-ABBVIE-20K-062-3501680-00

PATIENT
  Age: 73 Year
  Sex: Female

DRUGS (6)
  1. LEFLUNOMID [Concomitant]
     Active Substance: LEFLUNOMIDE
     Indication: PRODUCT USED FOR UNKNOWN INDICATION
     Dates: start: 20120914, end: 20131210
  2. OLUMIANT [Suspect]
     Active Substance: BARICITINIB
     Indication: PRODUCT USED FOR UNKNOWN INDICATION
     Route: 065
     Dates: start: 201810, end: 202005
  3. LEFLUNOMID [Concomitant]
     Active Substance: LEFLUNOMIDE
     Dates: start: 20210111
  4. RINVOQ [Suspect]
     Active Substance: UPADACITINIB
     Indication: RHEUMATOID ARTHRITIS
     Route: 048
     Dates: start: 202005
  5. LEFLUNOMID [Concomitant]
     Active Substance: LEFLUNOMIDE
     Dates: start: 20170620, end: 20190111
  6. LEFLUNOMID [Concomitant]
     Active Substance: LEFLUNOMIDE
     Dates: start: 20131210, end: 20170620

REACTIONS (5)
  - Anaemia [Unknown]
  - Cervical vertebral fracture [Unknown]
  - Cerebral disorder [Recovered/Resolved]
  - Headache [Unknown]
  - Aphasia [Recovered/Resolved]

NARRATIVE: CASE EVENT DATE: 20200529
